FAERS Safety Report 5683910-7 (Version None)
Quarter: 2008Q1

REPORT INFORMATION
  Report Type: 
  Country: None (occurrence: None)
  Receive Date: 20080328
  Receipt Date: 20080327
  Transmission Date: 20080703
  Serious: Yes (Life-Threatening, Hospitalization)
  Sender: FDA-Public Use
  Company Number: DE-BRISTOL-MYERS SQUIBB COMPANY-14127856

PATIENT
  Age: 72 Year
  Sex: Male
  Weight: 55 kg

DRUGS (3)
  1. CETUXIMAB [Suspect]
     Indication: GASTRIC CANCER
     Route: 041
     Dates: start: 20080225
  2. CISPLATIN [Suspect]
     Indication: GASTRIC CANCER
     Route: 041
     Dates: start: 20080225
  3. DOCETAXEL [Suspect]
     Indication: GASTRIC CANCER
     Route: 041
     Dates: start: 20080225

REACTIONS (2)
  - LEUKOPENIA [None]
  - NEUTROPENIA [None]
